FAERS Safety Report 22100761 (Version 8)
Quarter: 2023Q2

REPORT INFORMATION
  Report Type: Spontaneous
  Country: US (occurrence: US)
  Receive Date: 20230316
  Receipt Date: 20230608
  Transmission Date: 20230722
  Serious: Yes (Death, Hospitalization, Other)
  Sender: FDA-Public Use
  Company Number: US-UNITED THERAPEUTICS-UNT-2023-006621

PATIENT
  Age: 82 Year
  Sex: Male
  Weight: 89.342 kg

DRUGS (6)
  1. REMODULIN [Suspect]
     Active Substance: TREPROSTINIL
     Indication: Pulmonary arterial hypertension
     Dosage: 0.040 ?G/KG (PHARMACY PRE-FILLED WITH 2.4 ML/CASSETTE AT PUMP RATE 26 MCL/HOUR), CONTINUING
     Route: 058
     Dates: end: 202303
  2. REMODULIN [Suspect]
     Active Substance: TREPROSTINIL
     Dosage: 0.046 ?G/KG, CONTINUING
     Route: 058
     Dates: start: 202303
  3. REMODULIN [Suspect]
     Active Substance: TREPROSTINIL
     Dosage: 0.050 ?G/KG (PHARMACY FILLED REMUNITY WITH 3 ML/CASSETTE AT A RATE OF 32 MCL/HOUR), CONTINUING
     Route: 058
  4. REMODULIN [Suspect]
     Active Substance: TREPROSTINIL
     Dosage: 0.064 ?G/KG (PHARMACY PRE-FILLED WITH 3 ML/CASSETTE; PUMP RATE OF 41 MCL/HOUR), CONTINUING
     Route: 058
  5. REMODULIN [Suspect]
     Active Substance: TREPROSTINIL
     Dosage: UNK, CONTINUING
     Route: 058
     Dates: start: 20220414
  6. ELIQUIS [Concomitant]
     Active Substance: APIXABAN
     Indication: Product used for unknown indication
     Dosage: UNK
     Route: 065

REACTIONS (16)
  - Pneumonia [Fatal]
  - Pulmonary oedema [Fatal]
  - Pulmonary haemorrhage [Fatal]
  - Acute kidney injury [Fatal]
  - Oedema peripheral [Unknown]
  - Decubitus ulcer [Unknown]
  - Cellulitis [Unknown]
  - Gait inability [Unknown]
  - Fluid retention [Unknown]
  - Localised infection [Unknown]
  - Peripheral swelling [Unknown]
  - Infection [Unknown]
  - Respiration abnormal [Unknown]
  - Device failure [Recovered/Resolved]
  - Device malfunction [Recovered/Resolved]
  - Device malfunction [Recovered/Resolved]

NARRATIVE: CASE EVENT DATE: 20230301
